FAERS Safety Report 13503024 (Version 1)
Quarter: 2017Q2

REPORT INFORMATION
  Report Type: Spontaneous
  Country: US (occurrence: US)
  Receive Date: 20170501
  Receipt Date: 20170501
  Transmission Date: 20170830
  Serious: Yes (Death)
  Sender: FDA-Public Use
  Company Number: None

PATIENT
  Age: 72 Year
  Sex: Male

DRUGS (2)
  1. GENGRAF [Suspect]
     Active Substance: CYCLOSPORINE
     Indication: RENAL TRANSPLANT
     Dosage: 100MG CAP EVERY AM PO
     Route: 048
     Dates: start: 20170327, end: 201704
  2. ZORTRESS [Suspect]
     Active Substance: EVEROLIMUS
     Indication: RENAL TRANSPLANT
     Dosage: 0.25MG TAB EVERY AM PO
     Route: 048
     Dates: start: 20170327, end: 201704

REACTIONS (1)
  - Death [None]

NARRATIVE: CASE EVENT DATE: 201704
